FAERS Safety Report 9968049 (Version 1)
Quarter: 2014Q1

REPORT INFORMATION
  Report Type: Report from Study
  Country: US (occurrence: US)
  Receive Date: 20140306
  Receipt Date: 20140306
  Transmission Date: 20141002
  Serious: No
  Sender: FDA-Public Use
  Company Number: US-ABBVIE-13P-163-1145606-00

PATIENT
  Age: 60 Year
  Sex: Male
  Weight: 93 kg

DRUGS (2)
  1. HUMIRA [Suspect]
     Route: 058
     Dates: start: 20070901
  2. HUMIRA [Suspect]

REACTIONS (4)
  - Inappropriate schedule of drug administration [Recovered/Resolved]
  - Incorrect dose administered [Recovered/Resolved]
  - Sinusitis [Recovered/Resolved]
  - Dyspnoea [Recovered/Resolved]
